FAERS Safety Report 12663167 (Version 1)
Quarter: 2016Q3

REPORT INFORMATION
  Report Type: Spontaneous
  Country: GB (occurrence: GB)
  Receive Date: 20160818
  Receipt Date: 20160818
  Transmission Date: 20161109
  Serious: Yes (Other)
  Sender: FDA-Public Use
  Company Number: GB-TEVA-683468ACC

PATIENT
  Age: 44 Year
  Sex: Female
  Weight: 79 kg

DRUGS (12)
  1. DIFFLAM [Concomitant]
     Active Substance: BENZYDAMINE HYDROCHLORIDE
     Dosage: 8 DOSAGE FORMS DAILY; USE EVERY 3 HRS
     Dates: start: 20160718
  2. MEBEVERINE HYDROCHLORIDE [Concomitant]
     Active Substance: MEBEVERINE HYDROCHLORIDE
     Dosage: MAXIMUM 3 TIMES A DAY
     Dates: start: 20160614, end: 20160630
  3. FLUOXETINE [Concomitant]
     Active Substance: FLUOXETINE HYDROCHLORIDE
     Dosage: 2 DOSAGE FORMS DAILY; DAILY
     Dates: start: 20160215, end: 20160713
  4. TRIMETHOPRIM. [Suspect]
     Active Substance: TRIMETHOPRIM
     Dates: start: 20160718
  5. CODEINE PHOSPHATE [Concomitant]
     Active Substance: CODEINE PHOSPHATE
     Indication: PAIN
     Dosage: 8 DOSAGE FORMS DAILY; CAN BE TAKE WITH 2 PARACETAMOL EACH TIME
     Dates: start: 20160701
  6. NAPROXEN. [Concomitant]
     Active Substance: NAPROXEN
     Dosage: 2 DOSAGE FORMS DAILY;
     Dates: start: 20160718
  7. OMEPRAZOLE. [Concomitant]
     Active Substance: OMEPRAZOLE
     Indication: PROPHYLAXIS AGAINST GASTROINTESTINAL ULCER
     Dosage: 1 DOSAGE FORMS DAILY;
     Dates: start: 20160614
  8. GABAPENTIN. [Concomitant]
     Active Substance: GABAPENTIN
     Dosage: 3 DOSAGE FORMS DAILY;
     Dates: start: 20160708
  9. MIRTAZAPINE. [Concomitant]
     Active Substance: MIRTAZAPINE
     Dosage: 1 DOSAGE FORMS DAILY; AT NIGHT
     Dates: start: 20160518
  10. BACLOFEN. [Concomitant]
     Active Substance: BACLOFEN
     Dosage: TAKE HALF TO ONE 3 TIMES/DAY
     Dates: start: 20160614, end: 20160712
  11. DIAZEPAM. [Concomitant]
     Active Substance: DIAZEPAM
     Dosage: 2 DOSAGE FORMS DAILY;
     Dates: start: 20160718
  12. KETOCONAZOLE. [Concomitant]
     Active Substance: KETOCONAZOLE
     Dosage: APPLY AS LATHER FOR 2MIN THEN RINSE MAX TWICE A...
     Dates: start: 20130423

REACTIONS (2)
  - Vulval ulceration [Recovering/Resolving]
  - Mouth ulceration [Recovering/Resolving]

NARRATIVE: CASE EVENT DATE: 20160720
